FAERS Safety Report 8423319-6 (Version None)
Quarter: 2012Q2

REPORT INFORMATION
  Report Type: 
  Country: None (occurrence: None)
  Receive Date: 20120608
  Receipt Date: 20120606
  Transmission Date: 20120825
  Serious: Yes (Other)
  Sender: FDA-Public Use
  Company Number: JP-ABBOTT-12P-087-0943252-00

PATIENT
  Sex: Female
  Weight: 49 kg

DRUGS (3)
  1. HUMIRA [Suspect]
  2. HUMIRA [Suspect]
     Dates: end: 20120524
  3. HUMIRA [Suspect]
     Indication: CROHN'S DISEASE
     Route: 058
     Dates: start: 20101219, end: 20101219

REACTIONS (4)
  - HYPERGAMMAGLOBULINAEMIA BENIGN MONOCLONAL [None]
  - MULTIPLE MYELOMA [None]
  - HYPERGAMMAGLOBULINAEMIA [None]
  - ARTHRALGIA [None]
